FAERS Safety Report 13376746 (Version 1)
Quarter: 2017Q1

REPORT INFORMATION
  Report Type: Report from Study
  Country: US (occurrence: US)
  Receive Date: 20170328
  Receipt Date: 20170328
  Transmission Date: 20170429
  Serious: Yes (Disabling, Other)
  Sender: FDA-Public Use
  Company Number: US-009507513-1703USA010744

PATIENT
  Sex: Male

DRUGS (2)
  1. PEMBROLIZUMAB. [Suspect]
     Active Substance: PEMBROLIZUMAB
     Indication: NEUROENDOCRINE CARCINOMA OF THE SKIN
     Dosage: EVERY 3 WEEKS
  2. THERAPEUTIC RADIOPHARMACEUTICAL (UNSPECIFIED) [Concomitant]
     Active Substance: UNSPECIFIED INGREDIENT
     Dosage: UNK

REACTIONS (5)
  - Product use issue [Unknown]
  - Malignant neoplasm progression [Unknown]
  - Peripheral swelling [Unknown]
  - Feeling cold [Unknown]
  - Nausea [Unknown]
